FAERS Safety Report 10511075 (Version 1)
Quarter: 2014Q4

REPORT INFORMATION
  Report Type: Spontaneous
  Country: US (occurrence: None)
  Receive Date: 20141009
  Receipt Date: 20141009
  Transmission Date: 20150528
  Serious: No
  Sender: FDA-Public Use
  Company Number: None

PATIENT
  Age: 57 Year
  Sex: Female

DRUGS (1)
  1. ENBREL [Suspect]
     Active Substance: ETANERCEPT
     Indication: RHEUMATOID ARTHRITIS
     Dosage: 25MG PFS  BIW  SUBQUETANEOUSLY?12/14/2014 TO 10/02/2014
     Route: 058
     Dates: end: 20141002

REACTIONS (3)
  - Subcutaneous abscess [None]
  - Pruritus [None]
  - Mass [None]

NARRATIVE: CASE EVENT DATE: 20101214
